FAERS Safety Report 10078379 (Version 3)
Quarter: 2017Q3

REPORT INFORMATION
  Report Type: Spontaneous
  Country: US (occurrence: US)
  Receive Date: 20140415
  Receipt Date: 20170906
  Transmission Date: 20171127
  Serious: No
  Sender: FDA-Public Use
  Company Number: US-009507513-1404USA003668

PATIENT

DRUGS (3)
  1. TEMODAR [Suspect]
     Active Substance: TEMOZOLOMIDE
     Indication: NEUROENDOCRINE TUMOUR
     Dosage: 150-200 MG/M2 ON DAYS 10 AND 14
     Route: 048
  2. CAPECITABINE. [Concomitant]
     Active Substance: CAPECITABINE
     Indication: NEUROENDOCRINE TUMOUR
     Dosage: 600 MG/M2, BID FOR 14 DAYS
  3. YTTRIUM-90 [Concomitant]
     Active Substance: YTTRIUM Y-90
     Indication: NEUROENDOCRINE TUMOUR
     Dosage: UNK

REACTIONS (1)
  - Off label use [Unknown]
